FAERS Safety Report 18099440 (Version 1)
Quarter: 2020Q3

REPORT INFORMATION
  Report Type: Spontaneous
  Country: US (occurrence: US)
  Receive Date: 20200731
  Receipt Date: 20200731
  Transmission Date: 20201103
  Serious: Yes (Other)
  Sender: FDA-Public Use
  Company Number: US-PURDUE-USA-2020-0160101

PATIENT

DRUGS (1)
  1. OXYCODONE HYDROCHLORIDE (SIMILAR TO NDA 22?272) [Suspect]
     Active Substance: OXYCODONE HYDROCHLORIDE
     Indication: PRODUCT USED FOR UNKNOWN INDICATION
     Dosage: UNK
     Route: 048
     Dates: start: 201509

REACTIONS (7)
  - Surgery [Unknown]
  - Fall [Unknown]
  - Lethargy [Unknown]
  - Impaired driving ability [Unknown]
  - Upper limb fracture [Unknown]
  - Confusional state [Unknown]
  - Amnesia [Unknown]
